FAERS Safety Report 8343124-9 (Version None)
Quarter: 2012Q2

REPORT INFORMATION
  Report Type: 
  Country: None (occurrence: None)
  Receive Date: 20120508
  Receipt Date: 20120427
  Transmission Date: 20120825
  Serious: Yes (Other)
  Sender: FDA-Public Use
  Company Number: IE-JNJFOC-20120506817

PATIENT
  Age: 53 Year
  Sex: Male

DRUGS (2)
  1. BISOPROLOL FUMARATE [Concomitant]
  2. XARELTO [Suspect]
     Indication: PRODUCT USED FOR UNKNOWN INDICATION
     Route: 048
     Dates: start: 20120404

REACTIONS (2)
  - HAEMATOMA [None]
  - COMPARTMENT SYNDROME [None]
